FAERS Safety Report 16292051 (Version 3)
Quarter: 2019Q4

REPORT INFORMATION
  Report Type: Spontaneous
  Country: US (occurrence: US)
  Receive Date: 20190509
  Receipt Date: 20191115
  Transmission Date: 20200122
  Serious: No
  Sender: FDA-Public Use
  Company Number: US-ALKERMES INC.-ALK-2018-002620

PATIENT
  Age: 38 Year
  Sex: Male

DRUGS (4)
  1. VIVITROL [Suspect]
     Active Substance: NALTREXONE
     Indication: DRUG DEPENDENCE
     Dosage: 380 MG, Q3WK
     Route: 030
     Dates: start: 20191109
  2. VIVITROL [Suspect]
     Active Substance: NALTREXONE
     Dosage: 380 MG, Q3WK
     Route: 030
     Dates: start: 201812, end: 201912
  3. VIVITROL [Suspect]
     Active Substance: NALTREXONE
     Dosage: 380 MG, QMO
     Route: 030
     Dates: start: 2016
  4. VIVITROL [Suspect]
     Active Substance: NALTREXONE
     Dosage: 380 MG, Q3WK
     Route: 030
     Dates: start: 20170707, end: 20170707

REACTIONS (5)
  - Fatigue [Unknown]
  - Nausea [Unknown]
  - Feeling abnormal [Unknown]
  - Dizziness [Unknown]
  - Off label use [Not Recovered/Not Resolved]

NARRATIVE: CASE EVENT DATE: 2017
